FAERS Safety Report 9250875 (Version 1)
Quarter: 2013Q1

REPORT INFORMATION
  Report Type: Spontaneous
  Country: US (occurrence: None)
  Receive Date: 20130305
  Receipt Date: 20130305
  Transmission Date: 20140127
  Serious: Yes (Other)
  Sender: FDA-Public Use
  Company Number: 163-21880-1209273

PATIENT
  Age: 68 Year
  Sex: Male

DRUGS (6)
  1. REVLIMID (LENALIDOMIDE) (15 MILLIGRAM, CAPSULES) [Suspect]
     Indication: PLASMA CELL MYELOMA
     Dosage: 1 IN 1 D
     Route: 048
     Dates: start: 201201
  2. CALCIUM (CALCIUM) [Suspect]
  3. NEXIUM [Suspect]
  4. ADVIL (IBUPROFEN) [Suspect]
  5. DEXAMETHASONE (DEXAMETHASONE) [Suspect]
  6. CLARITHROMYCIN (CLARITHROMYCIN) [Suspect]

REACTIONS (1)
  - Diarrhoea [None]
